FAERS Safety Report 5923226-4 (Version None)
Quarter: 2008Q4

REPORT INFORMATION
  Report Type: 
  Country: None (occurrence: None)
  Receive Date: 20081020
  Receipt Date: 20081015
  Transmission Date: 20090506
  Serious: Yes (Hospitalization)
  Sender: FDA-Public Use
  Company Number: JP-ASTRAZENECA-2008AP05427

PATIENT
  Age: 23946 Day
  Sex: Female
  Weight: 52 kg

DRUGS (3)
  1. ESOMEPRAZOLE MAGNESIUM [Suspect]
     Indication: REFLUX OESOPHAGITIS
     Route: 048
     Dates: start: 20080523, end: 20080707
  2. PURSENNID [Concomitant]
     Indication: CONSTIPATION
     Dosage: AS REQUIRED
     Route: 048
     Dates: start: 20080425
  3. LAXOBERON [Concomitant]
     Indication: CONSTIPATION
     Dosage: OPTIMAL DOSE AS REQUIRED
     Route: 048
     Dates: start: 20080425

REACTIONS (1)
  - OESOPHAGITIS [None]
